FAERS Safety Report 8763422 (Version 2)
Quarter: 2012Q4

REPORT INFORMATION
  Report Type: 
  Country: US (occurrence: US)
  Receive Date: 20120831
  Receipt Date: 20121025
  Transmission Date: 20130627
  Serious: Yes (Other)
  Sender: FDA-Public Use
  Company Number: US-PAR PHARMACEUTICAL, INC-2012SCPR004591

PATIENT

DRUGS (1)
  1. FENTANYL CITRATE [Suspect]
     Indication: CANCER PAIN
     Dosage: UNK, oral transmucosal
     Dates: start: 20120820

REACTIONS (1)
  - Terminal state [Not Recovered/Not Resolved]
